FAERS Safety Report 11660785 (Version 2)
Quarter: 2015Q4

REPORT INFORMATION
  Report Type: Report from Study
  Country: US (occurrence: US)
  Receive Date: 20151026
  Receipt Date: 20151113
  Transmission Date: 20160304
  Serious: Yes (Other)
  Sender: FDA-Public Use
  Company Number: US-GILEAD-2015-0178200

PATIENT
  Age: 59 Year
  Sex: Female

DRUGS (1)
  1. LEDIPASVIR/SOFOSBUVIR [Suspect]
     Active Substance: LEDIPASVIR\SOFOSBUVIR
     Indication: CHRONIC HEPATITIS C
     Dosage: 1 DF, UNK
     Route: 048
     Dates: start: 20150915, end: 20151026

REACTIONS (16)
  - Chest discomfort [Unknown]
  - Dyspnoea [Unknown]
  - Pollakiuria [Unknown]
  - Chills [Unknown]
  - Back pain [Recovered/Resolved]
  - Pyrexia [Unknown]
  - Dry eye [Unknown]
  - Eye disorder [Unknown]
  - Myalgia [Unknown]
  - Painful respiration [Recovered/Resolved]
  - Nephrolithiasis [Unknown]
  - Nausea [Unknown]
  - Cough [Unknown]
  - Headache [Unknown]
  - Insomnia [Unknown]
  - Dry mouth [Unknown]

NARRATIVE: CASE EVENT DATE: 20150915
